FAERS Safety Report 9234358 (Version 1)
Quarter: 2013Q2

REPORT INFORMATION
  Report Type: Spontaneous
  Country: IL (occurrence: IL)
  Receive Date: 20130416
  Receipt Date: 20130416
  Transmission Date: 20140414
  Serious: Yes (Other)
  Sender: FDA-Public Use
  Company Number: IL-JNJFOC-20130404302

PATIENT
  Age: 60 Year
  Sex: Female

DRUGS (2)
  1. SIMPONI [Suspect]
     Indication: RHEUMATOID ARTHRITIS
     Route: 058
     Dates: start: 201302
  2. SIMPONI [Suspect]
     Indication: RHEUMATOID ARTHRITIS
     Dosage: SECOND DOSE
     Route: 058
     Dates: start: 20130307

REACTIONS (1)
  - Pruritus generalised [Unknown]
